APPROVED DRUG PRODUCT: PIROXICAM
Active Ingredient: PIROXICAM
Strength: 20MG
Dosage Form/Route: CAPSULE;ORAL
Application: A073536 | Product #001
Applicant: SUN PHARMACEUTICAL INDUSTRIES INC
Approved: Mar 12, 1993 | RLD: No | RS: No | Type: DISCN